FAERS Safety Report 9740091 (Version 2)
Quarter: 2014Q2

REPORT INFORMATION
  Report Type: Report from Study
  Country: GB (occurrence: GB)
  Receive Date: 20131209
  Receipt Date: 20140501
  Transmission Date: 20141212
  Serious: Yes (Other)
  Sender: FDA-Public Use
  Company Number: GB-GLAXOSMITHKLINE-B0951161A

PATIENT
  Age: 45 Year
  Sex: Male

DRUGS (11)
  1. SERETIDE [Suspect]
     Indication: ASTHMA
     Dosage: 1PUFF TWICE PER DAY
     Route: 065
     Dates: start: 20080423, end: 20140108
  2. PIZOTIFEN [Concomitant]
     Dosage: 45UG AT NIGHT
  3. SALBUTAMOL [Concomitant]
     Dosage: 100MCG AS REQUIRED
  4. MIRTAZAPINE [Concomitant]
     Dosage: 45MG PER DAY
  5. THYROXINE [Concomitant]
     Dosage: 100MG IN THE MORNING
  6. AMITRIPTYLINE [Concomitant]
     Dosage: 10MG AT NIGHT
  7. CETIRIZINE [Concomitant]
     Dosage: 10MG PER DAY
  8. RANITIDINE [Concomitant]
     Dosage: 150U TWICE PER DAY
  9. MOMETASONE [Concomitant]
  10. CHLORPROMAZINE [Concomitant]
     Dosage: 50MG TWICE PER DAY
  11. LOSARTAN [Concomitant]
     Dosage: 100MG PER DAY

REACTIONS (2)
  - Lower respiratory tract infection [Recovered/Resolved]
  - Peak expiratory flow rate decreased [Recovered/Resolved]
